FAERS Safety Report 9180885 (Version 1)
Quarter: 2013Q1

REPORT INFORMATION
  Report Type: Report from Study
  Country: CA (occurrence: CA)
  Receive Date: 20130322
  Receipt Date: 20130322
  Transmission Date: 20140127
  Serious: Yes (Other)
  Sender: FDA-Public Use
  Company Number: CA-JNJFOC-20130307523

PATIENT
  Sex: Female

DRUGS (6)
  1. REMICADE [Suspect]
     Indication: RHEUMATOID ARTHRITIS
     Route: 042
     Dates: start: 20130205
  2. REMICADE [Suspect]
     Indication: RHEUMATOID ARTHRITIS
     Route: 042
     Dates: start: 20070911
  3. METHOTREXATE [Concomitant]
     Route: 065
  4. HYDROXYCHLOROQUINE [Concomitant]
     Route: 065
  5. FOLIC ACID [Concomitant]
     Route: 065
  6. FOSAMAX [Concomitant]
     Route: 065

REACTIONS (1)
  - Knee arthroplasty [Unknown]
